FAERS Safety Report 14148615 (Version 2)
Quarter: 2020Q2

REPORT INFORMATION
  Report Type: Report from Study
  Country: US (occurrence: US)
  Receive Date: 20171101
  Receipt Date: 20200615
  Transmission Date: 20200713
  Serious: No
  Sender: FDA-Public Use
  Company Number: PHHY2016US048737

PATIENT
  Age: 26 Year
  Sex: Female

DRUGS (1)
  1. GILENYA [Suspect]
     Active Substance: FINGOLIMOD HYDROCHLORIDE
     Indication: MULTIPLE SCLEROSIS
     Dosage: UNK, QD
     Route: 065

REACTIONS (2)
  - Maternal exposure during pregnancy [Unknown]
  - Normal newborn [Unknown]

NARRATIVE: CASE EVENT DATE: 201603
